FAERS Safety Report 6347634-5 (Version None)
Quarter: 2009Q3

REPORT INFORMATION
  Report Type: 
  Country: None (occurrence: None)
  Receive Date: 20090910
  Receipt Date: 20090901
  Transmission Date: 20100115
  Serious: Yes (Other)
  Sender: FDA-Public Use
  Company Number: NO-JNJFOC-20090901372

PATIENT
  Age: 64 Year
  Sex: Female

DRUGS (3)
  1. DOXORUBICIN HCL [Suspect]
     Indication: DRUG USE FOR UNKNOWN INDICATION
     Route: 042
  2. HOLOXAN [Concomitant]
     Route: 065
  3. MESNA [Concomitant]
     Route: 065

REACTIONS (1)
  - ENCEPHALOPATHY [None]
